FAERS Safety Report 19372013 (Version 1)
Quarter: 2021Q2

REPORT INFORMATION
  Report Type: Report from Study
  Country: US (occurrence: US)
  Receive Date: 20210603
  Receipt Date: 20210603
  Transmission Date: 20210717
  Serious: Yes (Other)
  Sender: FDA-Public Use
  Company Number: US-MYLANLABS-2021M1031908

PATIENT
  Age: 59 Year
  Sex: Female

DRUGS (4)
  1. QUINACRINE                         /00221301/ [Suspect]
     Active Substance: QUINACRINE
     Indication: COLORECTAL CANCER METASTATIC
  2. CAPECITABINE. [Suspect]
     Active Substance: CAPECITABINE
     Indication: COLORECTAL CANCER METASTATIC
     Dosage: 1000 MILLIGRAM/SQ. METER, BID, 1000 MG/M 2 ADMINISTERED TWICE DAILY ON DAYS 1?14 OF A 21?DAY CYCLE.
     Route: 048
  3. CAPECITABINE. [Suspect]
     Active Substance: CAPECITABINE
     Indication: COLORECTAL ADENOCARCINOMA
  4. QUINACRINE                         /00221301/ [Suspect]
     Active Substance: QUINACRINE
     Indication: COLORECTAL ADENOCARCINOMA
     Dosage: ADMINISTERED ON EACH DAY OF THE 21?DAY CYCLE
     Route: 048

REACTIONS (11)
  - Yellow skin [Recovered/Resolved]
  - Hyperbilirubinaemia [Not Recovered/Not Resolved]
  - Palmar-plantar erythrodysaesthesia syndrome [Not Recovered/Not Resolved]
  - Cancer fatigue [Not Recovered/Not Resolved]
  - Stomatitis [Recovered/Resolved]
  - Chromaturia [Not Recovered/Not Resolved]
  - Weight decreased [Not Recovered/Not Resolved]
  - Decreased appetite [Not Recovered/Not Resolved]
  - Rash [Not Recovered/Not Resolved]
  - Diarrhoea [Recovered/Resolved]
  - Vomiting [Recovered/Resolved]

NARRATIVE: CASE EVENT DATE: 20160317
